FAERS Safety Report 21482808 (Version 2)
Quarter: 2022Q4

REPORT INFORMATION
  Report Type: Spontaneous
  Country: CA (occurrence: CA)
  Receive Date: 20221020
  Receipt Date: 20221129
  Transmission Date: 20230112
  Serious: Yes (Hospitalization, Other)
  Sender: FDA-Public Use
  Company Number: CA-TEVA-2022-CA-2816863

PATIENT
  Age: 70 Year
  Sex: Female

DRUGS (23)
  1. CISPLATIN [Interacting]
     Active Substance: CISPLATIN
     Indication: Small cell lung cancer
     Route: 065
  2. CISPLATIN [Interacting]
     Active Substance: CISPLATIN
     Indication: Non-small cell lung cancer
  3. CISPLATIN [Interacting]
     Active Substance: CISPLATIN
     Indication: Chemotherapy
  4. NABILONE [Interacting]
     Active Substance: NABILONE
     Indication: Neuralgia
     Dosage: EVERY 1 DAYS, 5.0 YEARS
     Route: 048
  5. NABILONE [Interacting]
     Active Substance: NABILONE
     Route: 048
  6. NABILONE [Interacting]
     Active Substance: NABILONE
     Route: 048
  7. NABILONE [Interacting]
     Active Substance: NABILONE
     Route: 048
  8. NABILONE [Interacting]
     Active Substance: NABILONE
     Dosage: EVERY 1 DAYS
     Route: 048
  9. NABILONE [Interacting]
     Active Substance: NABILONE
     Dosage: 1 MILLIGRAM DAILY;
     Route: 048
  10. NABILONE [Interacting]
     Active Substance: NABILONE
     Dosage: 2 MILLIGRAM DAILY;
     Route: 065
  11. NABILONE [Interacting]
     Active Substance: NABILONE
     Dosage: .5 MILLIGRAM DAILY;
     Route: 048
  12. DOCETAXEL [Suspect]
     Active Substance: DOCETAXEL
     Indication: Small cell lung cancer
     Route: 065
  13. DOCETAXEL [Suspect]
     Active Substance: DOCETAXEL
     Indication: Non-small cell lung cancer
  14. DOCETAXEL [Suspect]
     Active Substance: DOCETAXEL
     Indication: Chemotherapy
  15. PACLITAXEL [Suspect]
     Active Substance: PACLITAXEL
     Indication: Small cell lung cancer
     Route: 065
  16. HALOPERIDOL [Suspect]
     Active Substance: HALOPERIDOL
     Indication: Prophylaxis of nausea and vomiting
     Route: 065
  17. BISOPROLOL [Concomitant]
     Active Substance: BISOPROLOL
     Indication: Product used for unknown indication
  18. BUPROPION [Concomitant]
     Active Substance: BUPROPION
     Indication: Product used for unknown indication
     Route: 065
  19. DOMPERIDONE [Concomitant]
     Active Substance: DOMPERIDONE
     Indication: Product used for unknown indication
  20. HALOPERIDOL [Concomitant]
     Active Substance: HALOPERIDOL
     Indication: Product used for unknown indication
  21. LORAZEPAM [Concomitant]
     Active Substance: LORAZEPAM
     Indication: Product used for unknown indication
     Route: 065
  22. HALDOL [Concomitant]
     Active Substance: HALOPERIDOL
     Indication: Dementia
     Route: 065
  23. DOCETAXEL [Concomitant]
     Active Substance: DOCETAXEL
     Indication: Small cell lung cancer
     Route: 065

REACTIONS (17)
  - Alopecia [Recovered/Resolved]
  - Cannabinoid hyperemesis syndrome [Recovered/Resolved]
  - Cognitive disorder [Recovered/Resolved]
  - Condition aggravated [Recovered/Resolved]
  - Decreased appetite [Recovered/Resolved]
  - Diarrhoea [Recovered/Resolved]
  - Drug interaction [Recovered/Resolved]
  - Nausea [Recovered/Resolved]
  - Neuralgia [Recovered/Resolved]
  - Off label use [Recovered/Resolved]
  - Oral pain [Recovered/Resolved]
  - Renal function test abnormal [Recovered/Resolved]
  - Vomiting [Recovered/Resolved]
  - Agitation [Recovered/Resolved]
  - Drug clearance decreased [Recovered/Resolved]
  - Somnolence [Recovered/Resolved]
  - Toxicity to various agents [Recovered/Resolved]
